FAERS Safety Report 14644042 (Version 2)
Quarter: 2018Q2

REPORT INFORMATION
  Report Type: Spontaneous
  Country: DE (occurrence: DE)
  Receive Date: 20180315
  Receipt Date: 20180419
  Transmission Date: 20180711
  Serious: Yes (Hospitalization)
  Sender: FDA-Public Use
  Company Number: DE-PFIZER INC-2018104058

PATIENT
  Age: 77 Year
  Sex: Female
  Weight: 75 kg

DRUGS (4)
  1. GYNODIAN DEPOT (ESTRADIOL VALERATE - PRASTERONE ENANTATE) [Suspect]
     Active Substance: ESTRADIOL VALERATE\PRASTERONE ENANTATE
     Dosage: 1ML, 1, 1 AS NECESSARY (1 ML,1 IN 1 AS REQUIRED)
     Route: 030
     Dates: start: 20180126, end: 20180126
  2. ESTRADIOL. [Suspect]
     Active Substance: ESTRADIOL
     Dosage: UNK
     Route: 062
     Dates: start: 201708, end: 20180122
  3. GYNODIAN DEPOT (ESTRADIOL VALERATE - PRASTERONE ENANTATE) [Suspect]
     Active Substance: ESTRADIOL VALERATE\PRASTERONE ENANTATE
     Dosage: 1ML, 1, 1 AS NECESSARY (1 ML,1 IN 1 AS REQUIRED)
     Route: 030
     Dates: start: 20170830, end: 20170830
  4. IBUPROFEN. [Concomitant]
     Active Substance: IBUPROFEN
     Dosage: 600 MG, 1XDAY
     Route: 048

REACTIONS (1)
  - Transient ischaemic attack [Recovered/Resolved]

NARRATIVE: CASE EVENT DATE: 20171019
